FAERS Safety Report 8821161 (Version 3)
Quarter: 2013Q1

REPORT INFORMATION
  Report Type: Spontaneous
  Country: US (occurrence: US)
  Receive Date: 20121002
  Receipt Date: 20130126
  Transmission Date: 20140127
  Serious: No
  Sender: FDA-Public Use
  Company Number: US-009507513-1209USA003619

PATIENT
  Age: 63 Year
  Sex: Male

DRUGS (1)
  1. COSOPT [Suspect]
     Indication: GLAUCOMA
     Dosage: UNK
     Route: 047
     Dates: start: 20120905, end: 20120907

REACTIONS (5)
  - Pain [Recovering/Resolving]
  - Erythema [Recovered/Resolved]
  - Drug intolerance [Recovered/Resolved]
  - Eye swelling [Recovering/Resolving]
  - Eye infection [Unknown]
